FAERS Safety Report 6645445-4 (Version None)
Quarter: 2010Q1

REPORT INFORMATION
  Report Type: 
  Country: None (occurrence: None)
  Receive Date: 20100322
  Receipt Date: 20100312
  Transmission Date: 20100710
  Serious: Yes (Hospitalization)
  Sender: FDA-Public Use
  Company Number: CH-ASTRAZENECA-2010SE11002

PATIENT
  Age: 56 Year
  Sex: Female

DRUGS (5)
  1. ATACAND [Suspect]
     Indication: HYPERTENSION
     Route: 048
     Dates: start: 20010101
  2. AMLODIPINE [Concomitant]
  3. BILOL [Concomitant]
  4. ELTROXIN [Concomitant]
     Dates: start: 20091222
  5. SPIRALGIN [Concomitant]
     Indication: HEADACHE
     Dates: start: 20100201, end: 20100207

REACTIONS (3)
  - ANGIOEDEMA [None]
  - HEADACHE [None]
  - HYPOAESTHESIA ORAL [None]
